FAERS Safety Report 10093624 (Version 1)
Quarter: 2014Q2

REPORT INFORMATION
  Report Type: Spontaneous
  Country: US (occurrence: US)
  Receive Date: 20140421
  Receipt Date: 20140421
  Transmission Date: 20141212
  Serious: No
  Sender: FDA-Public Use
  Company Number: US-SANOFI-AVENTIS-2013SA079711

PATIENT
  Age: 62 Year
  Sex: Female
  Weight: 48 kg

DRUGS (5)
  1. ALLEGRA [Suspect]
     Indication: HYPERSENSITIVITY
     Dosage: TAKEN FROM:A COUPLE OF DAYS
     Route: 048
  2. ALLEGRA [Suspect]
     Indication: NASAL CONGESTION
     Dosage: TAKEN FROM:A COUPLE OF DAYS
     Route: 048
  3. ALLEGRA [Suspect]
     Indication: HYPERSENSITIVITY
     Dosage: TAKEN FROM:A COUPLE OF DAYS
     Dates: start: 20130806, end: 20130809
  4. ALLEGRA [Suspect]
     Indication: NASAL CONGESTION
     Dosage: TAKEN FROM:A COUPLE OF DAYS
     Dates: start: 20130806, end: 20130809
  5. COLD-EEZE /PRI/ [Concomitant]
     Indication: OROPHARYNGEAL PAIN

REACTIONS (8)
  - Oropharyngeal pain [Recovered/Resolved]
  - Sneezing [Recovered/Resolved]
  - Cough [Unknown]
  - Insomnia [Unknown]
  - Nasal congestion [Recovered/Resolved]
  - Rhinorrhoea [Recovered/Resolved]
  - Drug ineffective [Unknown]
  - Inappropriate schedule of drug administration [Unknown]
